FAERS Safety Report 5924917-1 (Version None)
Quarter: 2008Q4

REPORT INFORMATION
  Report Type: 
  Country: None (occurrence: None)
  Receive Date: 20081017
  Receipt Date: 20081017
  Transmission Date: 20090506
  Serious: Yes (Life-Threatening, Hospitalization)
  Sender: FDA-Public Use
  Company Number: None

PATIENT
  Age: 23 Year
  Sex: Male
  Weight: 83.9154 kg

DRUGS (4)
  1. LEXAPRO [Suspect]
     Indication: DEPRESSION
     Dosage: 1.5 TABLETS ONCE A DAY PO
     Route: 048
  2. LEXAPRO [Suspect]
     Indication: SOCIAL PHOBIA
     Dosage: 1.5 TABLETS ONCE A DAY PO
     Route: 048
  3. IC CLONAZEPAM [Concomitant]
  4. IC BUPROPION HCL [Concomitant]

REACTIONS (4)
  - ANXIETY [None]
  - DEPRESSION [None]
  - SUICIDAL IDEATION [None]
  - SUICIDE ATTEMPT [None]
